FAERS Safety Report 25087088 (Version 3)
Quarter: 2025Q2

REPORT INFORMATION
  Report Type: Spontaneous
  Country: JP (occurrence: JP)
  Receive Date: 20250318
  Receipt Date: 20250403
  Transmission Date: 20250717
  Serious: Yes (Other)
  Sender: NOVARTIS
  Company Number: JP-002147023-NVSJ2025JP003262

PATIENT
  Age: 45 Year
  Sex: Female

DRUGS (5)
  1. LETROZOLE [Suspect]
     Active Substance: LETROZOLE
     Indication: Breast cancer metastatic
     Route: 048
  2. DENOSUMAB [Suspect]
     Active Substance: DENOSUMAB
     Indication: Metastases to bone
     Route: 065
  3. ALBUMIN TANNATE [Suspect]
     Active Substance: ALBUMIN TANNATE
     Indication: Diarrhoea
     Route: 065
  4. ABEMACICLIB [Concomitant]
     Active Substance: ABEMACICLIB
     Indication: Breast cancer metastatic
     Route: 048
  5. LEUPROLIDE ACETATE [Concomitant]
     Active Substance: LEUPROLIDE ACETATE
     Indication: Breast cancer metastatic
     Route: 065

REACTIONS (2)
  - Drug-induced liver injury [Not Recovered/Not Resolved]
  - Jaundice [Unknown]
